FAERS Safety Report 12790255 (Version 3)
Quarter: 2017Q3

REPORT INFORMATION
  Report Type: Report from Study
  Country: JP (occurrence: JP)
  Receive Date: 20160928
  Receipt Date: 20170705
  Transmission Date: 20171127
  Serious: Yes (Hospitalization)
  Sender: FDA-Public Use
  Company Number: JP-ALLERGAN-1670220US

PATIENT
  Age: 63 Year
  Sex: Female

DRUGS (6)
  1. DUOTRAV COMBINATION [Suspect]
     Active Substance: TIMOLOL MALEATE\TRAVOPROST
     Indication: NORMAL TENSION GLAUCOMA
     Dosage: 1 GTT, QD
     Route: 047
     Dates: end: 20160509
  2. LIVALO [Concomitant]
     Active Substance: PITAVASTATIN CALCIUM
     Indication: PRODUCT USED FOR UNKNOWN INDICATION
  3. BRIMONIDINE [Suspect]
     Active Substance: BRIMONIDINE TARTRATE
     Indication: NORMAL TENSION GLAUCOMA
     Dosage: 1 GTT, BID
     Route: 047
     Dates: start: 20150525
  4. AZOPT [Suspect]
     Active Substance: BRINZOLAMIDE
     Indication: NORMAL TENSION GLAUCOMA
     Dosage: 1 GTT, BID
     Route: 047
  5. BLOPRESS [Concomitant]
     Active Substance: CANDESARTAN CILEXETIL
     Indication: PRODUCT USED FOR UNKNOWN INDICATION
  6. TEARBALANCE [Concomitant]
     Active Substance: HYALURONATE SODIUM
     Indication: PRODUCT USED FOR UNKNOWN INDICATION
     Dosage: UNK
     Dates: end: 20160725

REACTIONS (2)
  - Eyelid ptosis [Recovered/Resolved]
  - Optic disc haemorrhage [Recovered/Resolved]

NARRATIVE: CASE EVENT DATE: 20160201
